FAERS Safety Report 5993168-7 (Version None)
Quarter: 2008Q4

REPORT INFORMATION
  Report Type: 
  Country: None (occurrence: None)
  Receive Date: 20081210
  Receipt Date: 20081210
  Transmission Date: 20090506
  Serious: Yes (Other)
  Sender: FDA-Public Use
  Company Number: None

PATIENT
  Age: 28 Year
  Sex: Female
  Weight: 113.3993 kg

DRUGS (1)
  1. RAPTIVA [Suspect]
     Indication: PSORIASIS
     Dosage: 1.25ML ONCE A WEEK SQ
     Route: 058
     Dates: start: 20040901, end: 20081209

REACTIONS (2)
  - PAPILLOMA VIRAL INFECTION [None]
  - VULVAR DYSPLASIA [None]
